FAERS Safety Report 7615748-5 (Version None)
Quarter: 2011Q3

REPORT INFORMATION
  Report Type: 
  Country: None (occurrence: None)
  Receive Date: 20110711
  Receipt Date: 20110627
  Transmission Date: 20111222
  Serious: Yes (Hospitalization, Other)
  Sender: FDA-Public Use
  Company Number: AUR-APL-2011-00635

PATIENT
  Age: 54 Year
  Sex: Male
  Weight: 133 kg

DRUGS (19)
  1. PRILOSEC [Concomitant]
  2. TOPIRAMATE [Suspect]
     Indication: NERVOUSNESS
     Dosage: 100 MG (50 MG,2 IN 1 D),ORAL
     Route: 048
     Dates: start: 20090401, end: 20100901
  3. TOPIRAMATE [Suspect]
     Indication: BIPOLAR DISORDER
     Dosage: 100 MG (50 MG,2 IN 1 D),ORAL
     Route: 048
     Dates: start: 20090401, end: 20100901
  4. TOPIRAMATE [Suspect]
     Indication: ANXIETY
     Dosage: 100 MG (50 MG,2 IN 1 D),ORAL
     Route: 048
     Dates: start: 20090401, end: 20100901
  5. TOPIRAMATE [Suspect]
     Indication: POST-TRAUMATIC STRESS DISORDER
     Dosage: 100 MG (50 MG,2 IN 1 D),ORAL
     Route: 048
     Dates: start: 20090401, end: 20100901
  6. TOPAMAX [Suspect]
     Indication: PRODUCT USED FOR UNKNOWN INDICATION
     Dates: start: 20110101
  7. XANAX [Suspect]
     Indication: NERVOUSNESS
     Dosage: (3 IN 1 D),ORAL, (2 MG)
     Route: 048
     Dates: start: 20090401, end: 20100901
  8. XANAX [Suspect]
     Indication: PANIC ATTACK
     Dosage: (3 IN 1 D),ORAL, (2 MG)
     Route: 048
     Dates: start: 20090401, end: 20100901
  9. XANAX [Suspect]
     Indication: BIPOLAR DISORDER
     Dosage: (3 IN 1 D),ORAL, (2 MG)
     Route: 048
     Dates: start: 20090401, end: 20100901
  10. XANAX [Suspect]
     Indication: POST-TRAUMATIC STRESS DISORDER
     Dosage: (3 IN 1 D),ORAL, (2 MG)
     Route: 048
     Dates: start: 20090401, end: 20100901
  11. XANAX [Suspect]
     Indication: ANXIETY
     Dosage: (3 IN 1 D),ORAL, (2 MG)
     Route: 048
     Dates: start: 20090401, end: 20100901
  12. XANAX [Suspect]
     Indication: NERVOUSNESS
     Dosage: (3 IN 1 D),ORAL, (2 MG)
     Route: 048
     Dates: start: 20110101
  13. XANAX [Suspect]
     Indication: PANIC ATTACK
     Dosage: (3 IN 1 D),ORAL, (2 MG)
     Route: 048
     Dates: start: 20110101
  14. XANAX [Suspect]
     Indication: BIPOLAR DISORDER
     Dosage: (3 IN 1 D),ORAL, (2 MG)
     Route: 048
     Dates: start: 20110101
  15. XANAX [Suspect]
     Indication: POST-TRAUMATIC STRESS DISORDER
     Dosage: (3 IN 1 D),ORAL, (2 MG)
     Route: 048
     Dates: start: 20110101
  16. XANAX [Suspect]
     Indication: ANXIETY
     Dosage: (3 IN 1 D),ORAL, (2 MG)
     Route: 048
     Dates: start: 20110101
  17. ZOLOFT [Suspect]
     Indication: DEPRESSION
     Dosage: 50 MG (50 MG,1 IN 1 D),ORAL
     Route: 048
     Dates: start: 20090101
  18. NEXIUM [Concomitant]
  19. ATENOLOL [Concomitant]

REACTIONS (15)
  - SPINAL COLUMN STENOSIS [None]
  - SUICIDAL IDEATION [None]
  - NEPHROLITHIASIS [None]
  - SEPSIS [None]
  - PAIN [None]
  - BLOOD PRESSURE DECREASED [None]
  - INTERVERTEBRAL DISC PROTRUSION [None]
  - DIZZINESS [None]
  - KIDNEY INFECTION [None]
  - SUICIDE ATTEMPT [None]
  - BLOOD CHOLESTEROL INCREASED [None]
  - INJURY [None]
  - DRUG INEFFECTIVE [None]
  - MENISCUS OPERATION [None]
  - HYPOAESTHESIA [None]
